FAERS Safety Report 16945194 (Version 1)
Quarter: 2019Q4

REPORT INFORMATION
  Report Type: Spontaneous
  Country: US (occurrence: US)
  Receive Date: 20190829
  Receipt Date: 20190829
  Transmission Date: 20200122
  Serious: Yes (Death)
  Sender: FDA-Public Use
  Company Number: None

PATIENT
  Sex: Male

DRUGS (4)
  1. PULMOZYME [Suspect]
     Active Substance: DORNASE ALFA
     Indication: CYSTIC FIBROSIS
     Dosage: ?          OTHER DOSE:2.5 L;?
     Route: 048
     Dates: start: 20181030
  2. GIRTAZAPINE [Concomitant]
  3. SOD CHL ? [Concomitant]
  4. TACROLUMUS [Concomitant]

REACTIONS (1)
  - Death [None]
